FAERS Safety Report 8328089-8 (Version None)
Quarter: 2012Q2

REPORT INFORMATION
  Report Type: 
  Country: None (occurrence: None)
  Receive Date: 20120502
  Receipt Date: 20120424
  Transmission Date: 20120825
  Serious: Yes (Hospitalization)
  Sender: FDA-Public Use
  Company Number: PHHY2012CA036350

PATIENT
  Sex: Male

DRUGS (3)
  1. GLEEVEC [Suspect]
     Indication: GASTROINTESTINAL STROMAL TUMOUR
     Dosage: UNK UKN, UNK
     Route: 048
     Dates: start: 20080901
  2. GLEEVEC [Suspect]
     Dosage: 800 MG, UNK
     Route: 048
     Dates: start: 20100801, end: 20110301
  3. SUTENT [Suspect]
     Indication: GASTROINTESTINAL STROMAL TUMOUR
     Dosage: UNK UKN, UNK
     Dates: end: 20120301

REACTIONS (7)
  - GASTROINTESTINAL STROMAL TUMOUR [None]
  - ANAEMIA [None]
  - TREATMENT FAILURE [None]
  - NEOPLASM MALIGNANT [None]
  - ENTEROCOLONIC FISTULA [None]
  - NEOPLASM PROGRESSION [None]
  - DEHYDRATION [None]
